FAERS Safety Report 18876419 (Version 1)
Quarter: 2021Q1

REPORT INFORMATION
  Report Type: Spontaneous
  Country: CN (occurrence: CN)
  Receive Date: 20210211
  Receipt Date: 20210211
  Transmission Date: 20210420
  Serious: Yes (Hospitalization, Other)
  Sender: FDA-Public Use
  Company Number: CN-ASTRAZENECA-2021A035014

PATIENT
  Age: 33706 Day
  Sex: Male
  Weight: 70 kg

DRUGS (3)
  1. RECOMBINANT HUMAN GRANULOCYTE COLONY STIMULATING FACTOR [Concomitant]
     Active Substance: GRANULOCYTE COLONY-STIMULATING FACTOR NOS
     Route: 058
     Dates: start: 20210114
  2. TAGRISSO [Suspect]
     Active Substance: OSIMERTINIB
     Indication: SYMPTOMATIC TREATMENT
     Route: 048
     Dates: start: 20201215, end: 20210113
  3. RECOMBINANT HUMAN GRANULOCYTE COLONY STIMULATING FACTOR [Concomitant]
     Active Substance: GRANULOCYTE COLONY-STIMULATING FACTOR NOS
     Route: 058
     Dates: start: 20210115

REACTIONS (6)
  - Myelosuppression [Recovering/Resolving]
  - Pneumonia [Unknown]
  - Purpura [Recovering/Resolving]
  - General physical health deterioration [Unknown]
  - Malignant neoplasm progression [Unknown]
  - Cerebral haemorrhage [Unknown]

NARRATIVE: CASE EVENT DATE: 20210112
